FAERS Safety Report 8860900 (Version 2)
Quarter: 2012Q4

REPORT INFORMATION
  Report Type: 
  Country: DE (occurrence: DE)
  Receive Date: 20121026
  Receipt Date: 20121107
  Transmission Date: 20130627
  Serious: Yes (Hospitalization)
  Sender: FDA-Public Use
  Company Number: DE-MERCK-1210DEU006784

PATIENT
  Age: 65 Year
  Sex: Female

DRUGS (1)
  1. EZETROL [Suspect]
     Indication: HYPERCHOLESTEROLAEMIA
     Dosage: 10 mg, qd
     Route: 048
     Dates: start: 200901, end: 201210

REACTIONS (13)
  - Oropharyngeal pain [Recovering/Resolving]
  - Paraesthesia [Recovering/Resolving]
  - Oedema mouth [Recovering/Resolving]
  - Conjunctivitis allergic [Recovering/Resolving]
  - Allergic respiratory symptom [Recovering/Resolving]
  - Dysphagia [Recovering/Resolving]
  - Oral disorder [Recovering/Resolving]
  - Dry throat [Recovering/Resolving]
  - Dry mouth [Recovering/Resolving]
  - Dyspnoea [Recovering/Resolving]
  - Ear pain [Recovering/Resolving]
  - Swelling face [None]
  - Lip swelling [None]
